FAERS Safety Report 6437308-4 (Version None)
Quarter: 2009Q4

REPORT INFORMATION
  Report Type: 
  Country: None (occurrence: None)
  Receive Date: 20091112
  Receipt Date: 20091105
  Transmission Date: 20100525
  Serious: Yes (Other)
  Sender: FDA-Public Use
  Company Number: US-ROCHE-667302

PATIENT
  Sex: Female
  Weight: 55.5 kg

DRUGS (1)
  1. BONIVA [Suspect]
     Route: 048
     Dates: start: 20060101, end: 20090101

REACTIONS (3)
  - CARPAL TUNNEL SYNDROME [None]
  - FALL [None]
  - WRIST FRACTURE [None]
